FAERS Safety Report 6816120-8 (Version None)
Quarter: 2010Q3

REPORT INFORMATION
  Report Type: 
  Country: None (occurrence: None)
  Receive Date: 20100702
  Receipt Date: 20100702
  Transmission Date: 20110219
  Serious: No
  Sender: FDA-Public Use
  Company Number: None

PATIENT
  Age: 72 Year
  Sex: Male

DRUGS (1)
  1. LEVETIRACETAM [Suspect]
     Dosage: 500 MG BID PO
     Route: 048
     Dates: start: 20100617, end: 20100701

REACTIONS (3)
  - CONFUSIONAL STATE [None]
  - LOGORRHOEA [None]
  - PARANOIA [None]
